FAERS Safety Report 10560433 (Version 3)
Quarter: 2015Q1

REPORT INFORMATION
  Report Type: Spontaneous
  Country: IT (occurrence: IT)
  Receive Date: 20141103
  Receipt Date: 20150205
  Transmission Date: 20150720
  Serious: Yes (Hospitalization, Other)
  Sender: FDA-Public Use
  Company Number: IT-SA-2014SA149682

PATIENT
  Age: 85 Year
  Sex: Female

DRUGS (8)
  1. TAPAZOLE [Concomitant]
     Active Substance: METHIMAZOLE
  2. RAMIPRIL. [Suspect]
     Active Substance: RAMIPRIL
     Route: 048
     Dates: start: 20140910, end: 20141025
  3. CARDIRENE [Concomitant]
     Active Substance: ASPIRIN DL-LYSINE
     Route: 048
  4. LUVION [Suspect]
     Active Substance: CANRENONE
     Dosage: STRENGTH: 25 MG
     Route: 048
     Dates: start: 20140910, end: 20141025
  5. LASIX [Suspect]
     Active Substance: FUROSEMIDE
     Route: 048
     Dates: start: 20140101, end: 20141025
  6. BISOPROLOL HEMIFUMARATE [Concomitant]
     Active Substance: BISOPROLOL FUMARATE
  7. LANSOX [Concomitant]
     Active Substance: LANSOPRAZOLE
  8. MADOPAR [Concomitant]
     Active Substance: BENSERAZIDE HYDROCHLORIDE\LEVODOPA

REACTIONS (4)
  - Dehydration [Recovering/Resolving]
  - Acute kidney injury [Recovering/Resolving]
  - Hyperkalaemia [Recovering/Resolving]
  - Diarrhoea [Recovering/Resolving]

NARRATIVE: CASE EVENT DATE: 20141025
